FAERS Safety Report 9518873 (Version 1)
Quarter: 2013Q3

REPORT INFORMATION
  Report Type: Spontaneous
  Country: AU (occurrence: AU)
  Receive Date: 20130912
  Receipt Date: 20130912
  Transmission Date: 20140515
  Serious: Yes (Other)
  Sender: FDA-Public Use
  Company Number: AU-PFIZER INC-2013259842

PATIENT
  Sex: 0

DRUGS (1)
  1. DILANTIN [Suspect]
     Dosage: 400 MG, 1X/DAY
     Route: 048

REACTIONS (2)
  - Convulsion [Unknown]
  - Drug level decreased [Unknown]
